FAERS Safety Report 9158998 (Version 1)
Quarter: 2013Q1

REPORT INFORMATION
  Report Type: Spontaneous
  Country: GB (occurrence: None)
  Receive Date: 20130311
  Receipt Date: 20130311
  Transmission Date: 20140127
  Serious: Yes (Death)
  Sender: FDA-Public Use
  Company Number: MPS1-1000951

PATIENT
  Age: 17 Year
  Sex: Male

DRUGS (5)
  1. ALDURAZYME (LARONIDASE) CONCENTRATE FOR SOLUTION FOR INFUSION [Suspect]
     Indication: MUCOPOLYSACCHARIDOSIS I
     Route: 042
  2. BOSENTAN (BOSENTAN) [Concomitant]
  3. FUROSEMIDE (FUROSEMIDE) [Concomitant]
  4. SILDENAFIL (SILDENAFIL) [Concomitant]
  5. SPIRONOLACTONE (SPIRONOLACTONE) [Concomitant]

REACTIONS (1)
  - Procedural haemorrhage [None]
